FAERS Safety Report 15155373 (Version 1)
Quarter: 2018Q3

REPORT INFORMATION
  Report Type: Spontaneous
  Country: US (occurrence: US)
  Receive Date: 20180717
  Receipt Date: 20180717
  Transmission Date: 20181010
  Serious: Yes (Death)
  Sender: FDA-Public Use
  Company Number: US-JNJFOC-20180719501

PATIENT
  Age: 79 Year
  Sex: Female
  Weight: 64 kg

DRUGS (16)
  1. IMBRUVICA [Suspect]
     Active Substance: IBRUTINIB
     Indication: WALDENSTROM^S MACROGLOBULINAEMIA
     Route: 048
     Dates: start: 2018
  2. AMLODIPINE [Concomitant]
     Active Substance: AMLODIPINE BESYLATE
  3. KEFLEX [Concomitant]
     Active Substance: CEPHALEXIN
  4. IRON [Concomitant]
     Active Substance: IRON
  5. ALLOPURINOL. [Concomitant]
     Active Substance: ALLOPURINOL
  6. PREDNISONE. [Concomitant]
     Active Substance: PREDNISONE
  7. METOPROLOL. [Concomitant]
     Active Substance: METOPROLOL
  8. CLONIDINE. [Concomitant]
     Active Substance: CLONIDINE
  9. VITAMIN D [Concomitant]
     Active Substance: CHOLECALCIFEROL
  10. VALSARTAN. [Concomitant]
     Active Substance: VALSARTAN
  11. HYDROCHLOROTHIAZIDE. [Concomitant]
     Active Substance: HYDROCHLOROTHIAZIDE
  12. ASPIRIN. [Concomitant]
     Active Substance: ASPIRIN
  13. XANAX [Concomitant]
     Active Substance: ALPRAZOLAM
  14. MAGNESIUM [Concomitant]
     Active Substance: MAGNESIUM
  15. RANITIDINE. [Concomitant]
     Active Substance: RANITIDINE
  16. VALACYCLOVIR [Concomitant]
     Active Substance: VALACYCLOVIR HYDROCHLORIDE

REACTIONS (1)
  - Myocardial infarction [Fatal]

NARRATIVE: CASE EVENT DATE: 20180704
